FAERS Safety Report 14577159 (Version 2)
Quarter: 2018Q1

REPORT INFORMATION
  Report Type: Spontaneous
  Country: JP (occurrence: JP)
  Receive Date: 20180227
  Receipt Date: 20180322
  Transmission Date: 20180509
  Serious: Yes (Death)
  Sender: FDA-Public Use
  Company Number: JP-BAYER-2018-032619

PATIENT
  Age: 87 Year
  Sex: Female

DRUGS (4)
  1. BAYASPIRIN 100 MG [Interacting]
     Active Substance: ASPIRIN
     Indication: ANTIPLATELET THERAPY
  2. CLOPIDOGREL [Interacting]
     Active Substance: CLOPIDOGREL BISULFATE
     Indication: ANTIPLATELET THERAPY
  3. BAYASPIRIN 100 MG [Suspect]
     Active Substance: ASPIRIN
     Indication: ISCHAEMIC HEART DISEASE PROPHYLAXIS
     Dosage: UNK
     Route: 048
     Dates: start: 20170814, end: 20170826
  4. CLOPIDOGREL [Interacting]
     Active Substance: CLOPIDOGREL BISULFATE
     Indication: ISCHAEMIC HEART DISEASE PROPHYLAXIS
     Dosage: UNK

REACTIONS (5)
  - Brain herniation [Fatal]
  - Fall [None]
  - Labelled drug-drug interaction medication error [None]
  - Subdural haemorrhage [Fatal]
  - Drug administration error [None]
